FAERS Safety Report 7586655-1 (Version None)
Quarter: 2011Q3

REPORT INFORMATION
  Report Type: 
  Country: None (occurrence: None)
  Receive Date: 20110701
  Receipt Date: 20110620
  Transmission Date: 20111222
  Serious: Yes (Disabling)
  Sender: FDA-Public Use
  Company Number: US-ELI_LILLY_AND_COMPANY-US201104003621

PATIENT
  Age: 89 Year
  Sex: Female

DRUGS (4)
  1. HUMALOG MIX 75/25 [Suspect]
     Dosage: 38 U, EACH MORNING
     Dates: start: 19960101
  2. HUMALOG MIX 75/25 [Suspect]
     Dosage: 37 U, EACH EVENING
     Dates: start: 19960101
  3. HUMALOG MIX 75/25 [Suspect]
     Indication: DIABETES MELLITUS
     Dosage: 38 U, EACH MORNING
     Dates: start: 19960101
  4. HUMALOG MIX 75/25 [Suspect]
     Dosage: 37 U, EACH EVENING
     Dates: start: 19960101

REACTIONS (3)
  - ARTHROPATHY [None]
  - BONE DISORDER [None]
  - BLOOD GLUCOSE INCREASED [None]
